FAERS Safety Report 11570700 (Version 1)
Quarter: 2015Q3

REPORT INFORMATION
  Report Type: Spontaneous
  Country: US (occurrence: US)
  Receive Date: 20150916
  Receipt Date: 20150916
  Transmission Date: 20151125
  Serious: No
  Sender: FDA-Public Use
  Company Number: US-ELI_LILLY_AND_COMPANY-US200909002736

PATIENT
  Sex: Female

DRUGS (9)
  1. METOPROLOL [Concomitant]
     Active Substance: METOPROLOL
  2. LASIX [Concomitant]
     Active Substance: FUROSEMIDE
  3. FORTEO [Suspect]
     Active Substance: TERIPARATIDE
     Indication: OSTEOPOROSIS
     Dosage: 20 UG, DAILY (1/D)
     Dates: start: 200906
  4. MORPHINE [Concomitant]
     Active Substance: MORPHINE
  5. SYNTHROID [Concomitant]
     Active Substance: LEVOTHYROXINE SODIUM
  6. SIMVASTATIN. [Concomitant]
     Active Substance: SIMVASTATIN
  7. METFORMIN [Concomitant]
     Active Substance: METFORMIN HYDROCHLORIDE
  8. ZOLPIDEM [Concomitant]
     Active Substance: ZOLPIDEM\ZOLPIDEM TARTRATE
  9. SOMA [Concomitant]
     Active Substance: CARISOPRODOL

REACTIONS (9)
  - Breast discomfort [Unknown]
  - Breast pain [Unknown]
  - Lymphadenopathy [Unknown]
  - Musculoskeletal discomfort [Unknown]
  - Movement disorder [Unknown]
  - Bladder pain [Not Recovered/Not Resolved]
  - Feeling abnormal [Unknown]
  - Breast mass [Unknown]
  - Irritability [Unknown]

NARRATIVE: CASE EVENT DATE: 2009
